FAERS Safety Report 19874165 (Version 1)
Quarter: 2021Q3

REPORT INFORMATION
  Report Type: Spontaneous
  Country: GB (occurrence: GB)
  Receive Date: 20210923
  Receipt Date: 20210923
  Transmission Date: 20211014
  Serious: Yes (Other)
  Sender: FDA-Public Use
  Company Number: GB-ACCORD-239263

PATIENT
  Age: 73 Year
  Sex: Female
  Weight: 65 kg

DRUGS (1)
  1. ONDANSETRON [Suspect]
     Active Substance: ONDANSETRON
     Indication: ANAESTHESIA PROCEDURE
     Route: 042
     Dates: start: 20210511

REACTIONS (3)
  - Hypersensitivity [Recovered/Resolved]
  - Off label use [Unknown]
  - Tryptase increased [Recovered/Resolved]

NARRATIVE: CASE EVENT DATE: 20210511
